APPROVED DRUG PRODUCT: VIGADRONE
Active Ingredient: VIGABATRIN
Strength: 500MG/PACKET
Dosage Form/Route: FOR SOLUTION;ORAL
Application: A210196 | Product #001 | TE Code: AA
Applicant: AUCTA PHARMACEUTICALS INC
Approved: Jun 21, 2018 | RLD: No | RS: No | Type: RX